FAERS Safety Report 14745706 (Version 2)
Quarter: 2018Q2

REPORT INFORMATION
  Report Type: Report from Study
  Country: US (occurrence: US)
  Receive Date: 20180411
  Receipt Date: 20180504
  Transmission Date: 20180711
  Serious: Yes (Death)
  Sender: FDA-Public Use
  Company Number: US-BAYER-2018-066956

PATIENT
  Age: 55 Year
  Sex: Male

DRUGS (1)
  1. BETASERON [Suspect]
     Active Substance: INTERFERON BETA-1B
     Indication: MULTIPLE SCLEROSIS
     Dosage: 30 MG, QOD
     Dates: start: 20150721

REACTIONS (1)
  - Death [Fatal]

NARRATIVE: CASE EVENT DATE: 20180404
